FAERS Safety Report 15371516 (Version 1)
Quarter: 2018Q3

REPORT INFORMATION
  Report Type: Spontaneous
  Country: FR (occurrence: FR)
  Receive Date: 20180911
  Receipt Date: 20180911
  Transmission Date: 20181010
  Serious: Yes (Hospitalization)
  Sender: FDA-Public Use
  Company Number: FR-SA-2018SA246210

PATIENT
  Age: 15 Year
  Sex: Male
  Weight: 55.4 kg

DRUGS (3)
  1. RIFATER [Suspect]
     Active Substance: ISONIAZID\PYRAZINAMIDE\RIFAMPIN
     Indication: LYMPH NODE TUBERCULOSIS
     Dosage: 5 DF, QD
     Route: 048
     Dates: start: 20180607, end: 20180807
  2. PARACETAMOL [Concomitant]
     Active Substance: ACETAMINOPHEN
  3. DEXAMBUTOL [Suspect]
     Active Substance: ETHAMBUTOL HYDROCHLORIDE
     Indication: LYMPH NODE TUBERCULOSIS
     Dosage: 2 DF, QD
     Route: 048
     Dates: start: 20180607

REACTIONS (1)
  - Nephrogenic diabetes insipidus [Not Recovered/Not Resolved]

NARRATIVE: CASE EVENT DATE: 20180709
